FAERS Safety Report 7942014-0 (Version None)
Quarter: 2011Q4

REPORT INFORMATION
  Report Type: 
  Country: None (occurrence: None)
  Receive Date: 20111122
  Receipt Date: 20111122
  Transmission Date: 20120403
  Serious: Yes (Hospitalization)
  Sender: FDA-Public Use
  Company Number: None

PATIENT
  Age: 63 Year
  Sex: Female
  Weight: 51.7101 kg

DRUGS (6)
  1. PEPCID [Concomitant]
  2. ARMODAFINIL [Suspect]
     Indication: GLIOBLASTOMA MULTIFORME
     Dosage: 150MG/DAY
  3. TEMODAR [Concomitant]
  4. DECADRON [Concomitant]
  5. DEXAPRO [Concomitant]
  6. KEPPRA [Concomitant]

REACTIONS (4)
  - MOBILITY DECREASED [None]
  - INTRACRANIAL PRESSURE INCREASED [None]
  - DIZZINESS [None]
  - ACTIVITIES OF DAILY LIVING IMPAIRED [None]
